FAERS Safety Report 22066534 (Version 1)
Quarter: 2023Q1

REPORT INFORMATION
  Report Type: Spontaneous
  Country: US (occurrence: US)
  Receive Date: 20230306
  Receipt Date: 20230306
  Transmission Date: 20230418
  Serious: Yes (Other)
  Sender: FDA-Public Use
  Company Number: US-PFIZER INC-202300076243

PATIENT
  Age: 82 Year
  Sex: Male
  Weight: 73.48 kg

DRUGS (5)
  1. VYNDAMAX [Suspect]
     Active Substance: TAFAMIDIS
     Dosage: 61 MG, 1X/DAY
     Route: 048
  2. TRAMADOL [Concomitant]
     Active Substance: TRAMADOL
  3. FARXIGA [Concomitant]
     Active Substance: DAPAGLIFLOZIN PROPANEDIOL
     Dosage: 10 MG, 1X/DAY
  4. ATORVASTATIN [Concomitant]
     Active Substance: ATORVASTATIN
     Dosage: 40 MG, 1X/DAY
  5. GNC MEGA MEN [AMINO ACIDS NOS;CAROTENOIDS NOS;HERBAL NOS;MINERALS NOS; [Concomitant]
     Dosage: 1 DF, DAILY

REACTIONS (1)
  - Cardiac flutter [Unknown]
